FAERS Safety Report 5800855-X (Version None)
Quarter: 2008Q3

REPORT INFORMATION
  Report Type: 
  Country: None (occurrence: None)
  Receive Date: 20080703
  Receipt Date: 20080626
  Transmission Date: 20090109
  Serious: Yes (Other)
  Sender: FDA-Public Use
  Company Number: US-ABBOTT-08P-163-0459870-00

PATIENT
  Sex: Female
  Weight: 87.168 kg

DRUGS (1)
  1. HUMIRA [Suspect]
     Indication: RHEUMATOID ARTHRITIS
     Route: 058
     Dates: start: 20071222

REACTIONS (5)
  - CARPAL TUNNEL SYNDROME [None]
  - DYSPHAGIA [None]
  - DYSPHASIA [None]
  - MASS [None]
  - TONGUE DISORDER [None]
